FAERS Safety Report 6468248-2 (Version None)
Quarter: 2009Q4

REPORT INFORMATION
  Report Type: 
  Country: None (occurrence: None)
  Receive Date: 20091125
  Receipt Date: 20091105
  Transmission Date: 20100525
  Serious: Yes (Other)
  Sender: FDA-Public Use
  Company Number: 2009-00032

PATIENT
  Age: 50 Year
  Sex: Female
  Weight: 63.5036 kg

DRUGS (3)
  1. ZICAM EXTREME CONGESTION SPRAY [Suspect]
     Dosage: 2X DAY 3-4 WEEKS
  2. ALLEGRA [Concomitant]
  3. BENADRYL [Concomitant]

REACTIONS (2)
  - DRUG DEPENDENCE [None]
  - POSTNASAL DRIP [None]
